APPROVED DRUG PRODUCT: RIVAROXABAN
Active Ingredient: RIVAROXABAN
Strength: 20MG
Dosage Form/Route: TABLET;ORAL
Application: A218107 | Product #004 | TE Code: AB
Applicant: BIOCON PHARMA LTD
Approved: May 14, 2025 | RLD: No | RS: No | Type: RX